FAERS Safety Report 23597994 (Version 1)
Quarter: 2024Q1

REPORT INFORMATION
  Report Type: Spontaneous
  Country: JP (occurrence: JP)
  Receive Date: 20240305
  Receipt Date: 20240305
  Transmission Date: 20240410
  Serious: No
  Sender: FDA-Public Use
  Company Number: JP-WW-2023-13713

PATIENT
  Age: 73 Year
  Sex: Female

DRUGS (1)
  1. LUNESTA [Suspect]
     Active Substance: ESZOPICLONE
     Dosage: 1 MG
     Route: 048
     Dates: start: 202209

REACTIONS (4)
  - Thirst [Unknown]
  - Saliva altered [Unknown]
  - Oral discomfort [Unknown]
  - Taste disorder [Unknown]
